FAERS Safety Report 10447289 (Version 3)
Quarter: 2014Q4

REPORT INFORMATION
  Report Type: Spontaneous
  Country: BE (occurrence: BE)
  Receive Date: 20140911
  Receipt Date: 20141121
  Transmission Date: 20150528
  Serious: Yes (Hospitalization)
  Sender: FDA-Public Use
  Company Number: BE-ASTRAZENECA-2014SE63176

PATIENT
  Age: 88 Year
  Sex: Female
  Weight: 58.2 kg

DRUGS (16)
  1. D-VITAL FORTE [Concomitant]
     Dosage: 1000/880, DAILY
     Route: 065
  2. BRILIQUE [Suspect]
     Active Substance: TICAGRELOR
     Indication: STENT PLACEMENT
     Route: 048
     Dates: start: 20140418, end: 20140506
  3. ASAFLOW [Concomitant]
     Active Substance: ASPIRIN
     Route: 065
  4. TRADONAL RETARD [Concomitant]
     Route: 065
  5. PANTOMED [Concomitant]
     Active Substance: DEXPANTHENOL
     Route: 065
  6. DAFALGAN FORTE [Concomitant]
     Route: 065
  7. BRILIQUE [Suspect]
     Active Substance: TICAGRELOR
     Indication: STENT PLACEMENT
     Route: 048
     Dates: start: 20140703, end: 20140814
  8. CEDOCARD [Concomitant]
     Active Substance: ISOSORBIDE DINITRATE
     Route: 065
  9. CORUNO [Concomitant]
     Active Substance: MOLSIDOMINE
  10. COVERSYL [Concomitant]
     Active Substance: PERINDOPRIL
     Route: 065
  11. MEDROL [Concomitant]
     Active Substance: METHYLPREDNISOLONE
     Route: 065
  12. TRADONAL ODIS [Concomitant]
     Dosage: FOR NURSING, 50 MG
     Route: 065
  13. CRESTOR [Concomitant]
     Active Substance: ROSUVASTATIN CALCIUM
     Route: 065
  14. SOTALEX [Concomitant]
     Active Substance: SOTALOL
     Dosage: 2 X 0,5 TABLET PD, 160 MG TWO TIMES DAILY
     Route: 065
  15. CRESTOR [Concomitant]
     Active Substance: ROSUVASTATIN CALCIUM
     Route: 065
  16. L-THYROXINE NYCOMED [Concomitant]
     Route: 065

REACTIONS (2)
  - Pyoderma gangrenosum [Recovered/Resolved]
  - Ulcer haemorrhage [Recovered/Resolved]

NARRATIVE: CASE EVENT DATE: 20140418
